FAERS Safety Report 24172079 (Version 3)
Quarter: 2024Q4

REPORT INFORMATION
  Report Type: Spontaneous
  Country: DK (occurrence: DK)
  Receive Date: 20240805
  Receipt Date: 20241014
  Transmission Date: 20250114
  Serious: Yes (Other)
  Sender: NOVO NORDISK
  Company Number: DK-NOVOPROD-1260980

PATIENT
  Age: 72 Year
  Sex: Male
  Weight: 139 kg

DRUGS (8)
  1. WEGOVY [Suspect]
     Active Substance: SEMAGLUTIDE
     Indication: Obesity
     Dosage: 2.4 MG, QW
     Route: 058
  2. MORPHINE SULFATE [Concomitant]
     Active Substance: MORPHINE SULFATE
     Indication: Pain
     Dosage: UNK
     Route: 048
     Dates: start: 20240601
  3. ACETAMINOPHEN [Concomitant]
     Active Substance: ACETAMINOPHEN
     Indication: Pain
     Dosage: UNK
     Route: 048
     Dates: start: 2016
  4. WEGOVY [Suspect]
     Active Substance: SEMAGLUTIDE
     Indication: Obesity
     Dosage: UNK
  5. WEGOVY [Suspect]
     Active Substance: SEMAGLUTIDE
     Indication: Obesity
     Dosage: UNK
     Dates: end: 20240901
  6. FUROSEMIDE [Concomitant]
     Active Substance: FUROSEMIDE
     Indication: Diuretic therapy
     Dosage: 40 MG X 3 X 2 X 1
     Dates: start: 2020
  7. VERAPAMIL HYDROCHLORIDE [Concomitant]
     Active Substance: VERAPAMIL HYDROCHLORIDE
     Indication: Heart rate irregular
     Dosage: 80 MG, BID
     Dates: start: 2021
  8. RIVAROXABAN [Concomitant]
     Active Substance: RIVAROXABAN
     Indication: Blood disorder
     Dosage: 20 MG, QD
     Dates: start: 2022

REACTIONS (7)
  - Dyspnoea [Recovering/Resolving]
  - Angina pectoris [Recovered/Resolved]
  - Back pain [Recovering/Resolving]
  - Skin swelling [Recovering/Resolving]
  - Hyperhidrosis [Recovering/Resolving]
  - Fungal infection [Unknown]
  - Abdominal pain upper [Recovered/Resolved]
